FAERS Safety Report 6398577-2 (Version None)
Quarter: 2009Q4

REPORT INFORMATION
  Report Type: 
  Country: None (occurrence: None)
  Receive Date: 20091013
  Receipt Date: 20091006
  Transmission Date: 20100525
  Serious: Yes (Death, Hospitalization, Other)
  Sender: FDA-Public Use
  Company Number: US-BAYER-200924964NA

PATIENT
  Age: 52 Year
  Sex: Male

DRUGS (17)
  1. NEXAVAR [Suspect]
     Indication: HEPATIC NEOPLASM MALIGNANT
     Dosage: TOTAL DAILY DOSE: 800 MG  UNIT DOSE: 200 MG
     Route: 048
     Dates: start: 20090501, end: 20090701
  2. LOTION [Concomitant]
  3. LEVITRA [Concomitant]
  4. LANTUS [Concomitant]
     Dosage: 42 UNITS DAILY AND 40 UNITS AT BEDTIME
  5. LEXAPRO [Concomitant]
     Dosage: TOTAL DAILY DOSE: 5 MG  UNIT DOSE: 10 MG
  6. ALDACTONE [Concomitant]
     Dosage: TOTAL DAILY DOSE: 100 MG
  7. MULTI-VITAMINS [Concomitant]
     Dosage: 1 DAILY
  8. ZESTRIL [Concomitant]
     Dosage: TOTAL DAILY DOSE: 5 MG
  9. AMBIEN [Concomitant]
     Indication: INITIAL INSOMNIA
     Dosage: TOTAL DAILY DOSE: 10 MG
  10. POTASSIUM CHLORIDE [Concomitant]
     Dosage: TOTAL DAILY DOSE: 30 MEQ
  11. OS-CAL 500 PLUS D [Concomitant]
     Dosage: 1 DAILY
  12. LACTULOSE [Concomitant]
     Dosage: 15-30 ML
  13. PRILOSEC [Concomitant]
     Dosage: TOTAL DAILY DOSE: 40 MG
  14. FLEXERIL [Concomitant]
     Dosage: TOTAL DAILY DOSE: 30 MG
  15. INDERAL [Concomitant]
     Dosage: TOTAL DAILY DOSE: 30 MG
  16. LASIX [Concomitant]
     Dosage: TOTAL DAILY DOSE: 40 MG
  17. METOLAZONE [Concomitant]

REACTIONS (8)
  - BEDRIDDEN [None]
  - CONFUSIONAL STATE [None]
  - HEPATIC FAILURE [None]
  - LISTLESS [None]
  - NAUSEA [None]
  - RASH [None]
  - UPPER GASTROINTESTINAL HAEMORRHAGE [None]
  - WEIGHT DECREASED [None]
